FAERS Safety Report 6525047-0 (Version None)
Quarter: 2009Q4

REPORT INFORMATION
  Report Type: 
  Country: None (occurrence: None)
  Receive Date: 20091223
  Receipt Date: 20091214
  Transmission Date: 20100525
  Serious: Yes (Death)
  Sender: FDA-Public Use
  Company Number: A-NJ2007-14509

PATIENT
  Age: 89 Year
  Sex: Female

DRUGS (1)
  1. TRACLEER [Suspect]
     Indication: PULMONARY ARTERIAL HYPERTENSION
     Dosage: ORAL
     Route: 048
     Dates: start: 20060816, end: 20080606

REACTIONS (4)
  - ABDOMINAL DISCOMFORT [None]
  - DYSPNOEA [None]
  - LIVER FUNCTION TEST ABNORMAL [None]
  - THROAT IRRITATION [None]
